FAERS Safety Report 21956930 (Version 1)
Quarter: 2023Q1

REPORT INFORMATION
  Report Type: Report from Study
  Country: US (occurrence: US)
  Receive Date: 20230206
  Receipt Date: 20230206
  Transmission Date: 20230418
  Serious: Yes (Other)
  Sender: FDA-Public Use
  Company Number: US-MYLANLABS-2023M1011668

PATIENT
  Sex: Female

DRUGS (1)
  1. GLATIRAMER ACETATE [Suspect]
     Active Substance: GLATIRAMER ACETATE
     Indication: Multiple sclerosis
     Dosage: 40 MILLIGRAM, 3XW
     Route: 058

REACTIONS (7)
  - Syncope [Unknown]
  - Injection site mass [Unknown]
  - Injection site pain [Unknown]
  - Injection site pruritus [Unknown]
  - Dizziness [Unknown]
  - Nausea [Unknown]
  - Injection site erythema [Unknown]
